FAERS Safety Report 6469110-1 (Version None)
Quarter: 2009Q4

REPORT INFORMATION
  Report Type: 
  Country: None (occurrence: None)
  Receive Date: 20091203
  Receipt Date: 20071112
  Transmission Date: 20100525
  Serious: Yes (Hospitalization, Other)
  Sender: FDA-Public Use
  Company Number: US-ELI_LILLY_AND_COMPANY-US200709003688

PATIENT
  Sex: Female
  Weight: 52.154 kg

DRUGS (8)
  1. FORTEO [Suspect]
     Indication: OSTEOPOROSIS
     Dosage: UNK, UNK
     Dates: start: 20051101
  2. EVISTA [Suspect]
     Dosage: 60 MG, DAILY (1/D)
     Dates: start: 19970101
  3. NEXIUM [Concomitant]
     Dosage: 40 MG, DAILY (1/D)
  4. NASACORT [Concomitant]
     Dosage: UNK, DAILY (1/D)
  5. ASTELIN [Concomitant]
     Indication: HYPERSENSITIVITY
     Dosage: UNK, 2/D
     Route: 045
  6. LORATADINE [Concomitant]
     Dosage: 10 MG, DAILY (1/D)
  7. CALCIUM W/VITAMIN D /00944201/ [Concomitant]
  8. MULTI-VITAMIN [Concomitant]

REACTIONS (4)
  - ENDOMETRIAL CANCER [None]
  - HYPERTENSION [None]
  - METASTATIC NEOPLASM [None]
  - MUELLER'S MIXED TUMOUR [None]
